FAERS Safety Report 5484417-2 (Version None)
Quarter: 2007Q4

REPORT INFORMATION
  Report Type: 
  Country: None (occurrence: None)
  Receive Date: 20071010
  Receipt Date: 20070925
  Transmission Date: 20080405
  Serious: Yes (Hospitalization)
  Sender: FDA-Public Use
  Company Number: 2007S1009341

PATIENT
  Age: 52 Year
  Sex: Female

DRUGS (2)
  1. VERAPAMIL [Suspect]
  2. ACETAMINOPHEN [Suspect]

REACTIONS (4)
  - BLOOD PRESSURE DECREASED [None]
  - HEADACHE [None]
  - OVERDOSE [None]
  - SOMNOLENCE [None]
